FAERS Safety Report 13830704 (Version 3)
Quarter: 2018Q1

REPORT INFORMATION
  Report Type: Spontaneous
  Country: US (occurrence: US)
  Receive Date: 20170803
  Receipt Date: 20180201
  Transmission Date: 20180508
  Serious: No
  Sender: FDA-Public Use
  Company Number: US-SA-2017SA136935

PATIENT
  Age: 70 Year
  Sex: Female

DRUGS (24)
  1. ALENDRONATE [Concomitant]
     Active Substance: ALENDRONATE SODIUM
     Dosage: 70MG
     Route: 065
  2. ALPRAZOLAM. [Concomitant]
     Active Substance: ALPRAZOLAM
     Dosage: 1MG
     Route: 065
  3. ATENOLOL. [Concomitant]
     Active Substance: ATENOLOL
     Dosage: 50MG
     Route: 065
  4. ATORVASTATIN [Concomitant]
     Active Substance: ATORVASTATIN
     Dosage: 20MG
     Route: 065
  5. CARVEDILOL. [Concomitant]
     Active Substance: CARVEDILOL
     Dosage: 250MG
     Route: 065
  6. SIMVASTATIN. [Concomitant]
     Active Substance: SIMVASTATIN
     Dosage: 40MG
     Route: 065
  7. AMITRIPTYLIN [Concomitant]
     Active Substance: AMITRIPTYLINE
     Dosage: 50MG
     Route: 065
  8. PRIMIDONE. [Concomitant]
     Active Substance: PRIMIDONE
     Dosage: 250 MG
     Route: 065
  9. ROPINIROLE. [Concomitant]
     Active Substance: ROPINIROLE
     Dosage: 0.5MG
     Route: 065
  10. VALSARTAN. [Concomitant]
     Active Substance: VALSARTAN
     Dosage: 160-25MG
     Route: 065
  11. PRALUENT [Suspect]
     Active Substance: ALIROCUMAB
     Indication: HYPERLIPIDAEMIA
     Route: 058
     Dates: start: 20170612
  12. ACEBUTOLOL [Concomitant]
     Active Substance: ACEBUTOLOL
     Dosage: 400MG
     Route: 065
  13. AMLODIPINE [Concomitant]
     Active Substance: AMLODIPINE BESYLATE
     Dosage: 5MG
     Route: 065
  14. PRAVASTATIN. [Concomitant]
     Active Substance: PRAVASTATIN
     Dosage: 10MG
     Route: 065
  15. PANTOPRAZOLE [Concomitant]
     Active Substance: PANTOPRAZOLE
     Dosage: 40MG
     Route: 065
  16. QUETIAPINE. [Concomitant]
     Active Substance: QUETIAPINE
     Dosage: 25MG
     Route: 065
  17. PRALUENT [Suspect]
     Active Substance: ALIROCUMAB
     Indication: HYPERLIPIDAEMIA
     Route: 058
     Dates: start: 20170612
  18. ALIROCUMAB PREFILLED PEN [Suspect]
     Active Substance: ALIROCUMAB
     Indication: HYPERLIPIDAEMIA
     Dates: start: 20170612
  19. BISOPROLOL [Concomitant]
     Active Substance: BISOPROLOL
     Dosage: 10-6.25M
     Route: 065
  20. CILOSTAZOL. [Concomitant]
     Active Substance: CILOSTAZOL
     Dosage: 50MG
     Route: 065
  21. ALIROCUMAB PREFILLED PEN [Suspect]
     Active Substance: ALIROCUMAB
     Indication: HYPERLIPIDAEMIA
     Dates: start: 20170612
  22. ELIQUIS [Concomitant]
     Active Substance: APIXABAN
     Route: 065
  23. PRALUENT [Suspect]
     Active Substance: ALIROCUMAB
     Indication: HYPERLIPIDAEMIA
     Route: 058
     Dates: start: 20170612
  24. ALIROCUMAB PREFILLED PEN [Suspect]
     Active Substance: ALIROCUMAB
     Indication: HYPERLIPIDAEMIA
     Dates: start: 20170612

REACTIONS (1)
  - Diarrhoea [Not Recovered/Not Resolved]

NARRATIVE: CASE EVENT DATE: 201707
